FAERS Safety Report 6489726-6 (Version None)
Quarter: 2009Q4

REPORT INFORMATION
  Report Type: 
  Country: None (occurrence: None)
  Receive Date: 20091207
  Receipt Date: 20091123
  Transmission Date: 20100525
  Serious: Yes (Death, Hospitalization)
  Sender: FDA-Public Use
  Company Number: 2009AC000199

PATIENT
  Age: 75 Year
  Sex: Male

DRUGS (13)
  1. DIGOXIN [Suspect]
     Dosage: 0.125 MG;QD;PO
     Route: 048
     Dates: start: 20060411, end: 20080527
  2. FINASTERIDE [Concomitant]
  3. FLUTICASONE [Concomitant]
  4. METOPROLOL TARTRATE [Concomitant]
  5. HYDROCODONE [Concomitant]
  6. WARFARIN SODIUM [Concomitant]
  7. SPIRIVA [Concomitant]
  8. LEXAPRO [Concomitant]
  9. SINGULAIR [Concomitant]
  10. AZITHROMYCIN [Concomitant]
  11. FLOMAX [Concomitant]
  12. ATROVENT [Concomitant]
  13. FEXOFENADINE [Concomitant]

REACTIONS (17)
  - ABDOMINAL MASS [None]
  - ABDOMINAL PAIN [None]
  - ACTIVITIES OF DAILY LIVING IMPAIRED [None]
  - ANHEDONIA [None]
  - BRADYCARDIA [None]
  - CARDIO-RESPIRATORY ARREST [None]
  - DEPRESSION [None]
  - DYSPNOEA [None]
  - ECONOMIC PROBLEM [None]
  - EMOTIONAL DISORDER [None]
  - EMOTIONAL DISTRESS [None]
  - FATIGUE [None]
  - MULTIPLE INJURIES [None]
  - PAIN [None]
  - PALLOR [None]
  - SINUS TACHYCARDIA [None]
  - UNEVALUABLE EVENT [None]
